FAERS Safety Report 9513141 (Version 4)
Quarter: 2013Q4

REPORT INFORMATION
  Report Type: Spontaneous
  Country: US (occurrence: US)
  Receive Date: 20130910
  Receipt Date: 20131127
  Transmission Date: 20140711
  Serious: Yes (Other)
  Sender: FDA-Public Use
  Company Number: US-PFIZER INC-2013255875

PATIENT
  Age: 89 Year
  Sex: Female
  Weight: 54.42 kg

DRUGS (1)
  1. TOVIAZ [Suspect]
     Indication: BLADDER DISORDER
     Dosage: 4 MG, UNK
     Dates: start: 201306

REACTIONS (1)
  - Fall [Unknown]
